FAERS Safety Report 18816699 (Version 1)
Quarter: 2021Q1

REPORT INFORMATION
  Report Type: Spontaneous
  Country: US (occurrence: US)
  Receive Date: 20210129
  Receipt Date: 20210129
  Transmission Date: 20210419
  Serious: Yes (Hospitalization)
  Sender: FDA-Public Use
  Company Number: None

PATIENT
  Sex: Female

DRUGS (2)
  1. COPAXONE [Suspect]
     Active Substance: GLATIRAMER ACETATE
     Indication: MULTIPLE SCLEROSIS
     Route: 058
     Dates: start: 20101006
  2. BACLOFEN 10 MG TEVA PHARMACEUTICALS USA [Suspect]
     Active Substance: BACLOFEN
     Indication: MULTIPLE SCLEROSIS
     Dosage: OTHER FREQUENCY: THREE TIMES
     Route: 048
     Dates: start: 20190619

REACTIONS (2)
  - Ankle fracture [None]
  - Cerebrovascular accident [None]
